FAERS Safety Report 6500006-2 (Version None)
Quarter: 2009Q4

REPORT INFORMATION
  Report Type: 
  Country: None (occurrence: None)
  Receive Date: 20091216
  Receipt Date: 20091204
  Transmission Date: 20100525
  Serious: Yes (Hospitalization)
  Sender: FDA-Public Use
  Company Number: US-CELGENEUS-163-50794-09120466

PATIENT
  Sex: Male
  Weight: 82.7 kg

DRUGS (1)
  1. VIDAZA [Suspect]
     Dosage: 100MG/M2 =200MG
     Route: 058
     Dates: start: 20090105, end: 20090109

REACTIONS (6)
  - CHILLS [None]
  - COUGH [None]
  - MALAISE [None]
  - PLEURAL EFFUSION [None]
  - PYREXIA [None]
  - STAPHYLOCOCCAL SKIN INFECTION [None]
